FAERS Safety Report 5551098-9 (Version None)
Quarter: 2007Q4

REPORT INFORMATION
  Report Type: 
  Country: None (occurrence: None)
  Receive Date: 20071212
  Receipt Date: 20071203
  Transmission Date: 20080405
  Serious: Yes (Other)
  Sender: FDA-Public Use
  Company Number: A0697996B

PATIENT
  Sex: Male
  Weight: 3.9 kg

DRUGS (6)
  1. WELLBUTRIN [Suspect]
     Indication: DEPRESSION
  2. LEXAPRO [Suspect]
     Indication: DEPRESSION
     Dosage: 10MG PER DAY
     Dates: end: 20070322
  3. TYLENOL [Concomitant]
  4. PRENATAL VITAMINS [Concomitant]
  5. VICODIN [Concomitant]
  6. PYRIDIUM [Concomitant]

REACTIONS (3)
  - DRUG EXPOSURE DURING PREGNANCY [None]
  - INFECTION [None]
  - PULMONARY HYPERTENSION [None]
